FAERS Safety Report 6607455-2 (Version None)
Quarter: 2010Q1

REPORT INFORMATION
  Report Type: 
  Country: None (occurrence: None)
  Receive Date: 20100301
  Receipt Date: 20100222
  Transmission Date: 20100710
  Serious: Yes (Death)
  Sender: FDA-Public Use
  Company Number: JP-BAYER-200914068BYL

PATIENT
  Age: 78 Year
  Sex: Male

DRUGS (2)
  1. NEXAVAR [Suspect]
     Indication: HEPATIC NEOPLASM MALIGNANT
     Dosage: TOTAL DAILY DOSE: 800 MG  UNIT DOSE: 200 MG
     Route: 048
     Dates: start: 20091005, end: 20091022
  2. AMLODIPINE [Concomitant]
     Indication: HYPERTENSION
     Dosage: UNIT DOSE: 2.5 MG
     Route: 048
     Dates: end: 20091022

REACTIONS (1)
  - LUNG INFECTION [None]
